FAERS Safety Report 14391442 (Version 4)
Quarter: 2018Q2

REPORT INFORMATION
  Report Type: Report from Study
  Country: FR (occurrence: FR)
  Receive Date: 20180116
  Receipt Date: 20180426
  Transmission Date: 20180711
  Serious: Yes (Death, Hospitalization, Other)
  Sender: FDA-Public Use
  Company Number: FR-BRISTOL-MYERS SQUIBB COMPANY-BMS-2018-001603

PATIENT
  Age: 74 Year
  Sex: Male

DRUGS (1)
  1. NIVOLUMAB [Suspect]
     Active Substance: NIVOLUMAB
     Indication: LUNG NEOPLASM MALIGNANT
     Dosage: 300 MG, Q2WK
     Route: 042
     Dates: start: 20171011, end: 20171212

REACTIONS (6)
  - Acute pulmonary oedema [Unknown]
  - Pulmonary sepsis [Unknown]
  - Cardiac failure acute [Fatal]
  - Cardiac failure [Recovered/Resolved]
  - Bronchitis [Unknown]
  - Klebsiella infection [Fatal]

NARRATIVE: CASE EVENT DATE: 20171027
